FAERS Safety Report 24211083 (Version 1)
Quarter: 2024Q3

REPORT INFORMATION
  Report Type: Spontaneous
  Country: CN (occurrence: CN)
  Receive Date: 20240814
  Receipt Date: 20240814
  Transmission Date: 20241016
  Serious: Yes (Death, Life-Threatening)
  Sender: BAUSCH AND LOMB
  Company Number: CN-BAUSCH-BL-2024-012063

PATIENT
  Age: 73 Year
  Sex: Male

DRUGS (6)
  1. DEXAMETHASONE [Suspect]
     Active Substance: DEXAMETHASONE
     Indication: T-cell type acute leukaemia
     Dosage: VCP CHEMOTHERAPY (ON DAYS 1-14)
     Route: 042
  2. DEXAMETHASONE [Suspect]
     Active Substance: DEXAMETHASONE
     Indication: T-cell type acute leukaemia
     Dosage: PRE-TREATMENT
     Route: 042
  3. CYCLOPHOSPHAMIDE [Suspect]
     Active Substance: CYCLOPHOSPHAMIDE
     Indication: T-cell type acute leukaemia
     Dosage: PRE-TREATMENT (NMPAH H32020857)
     Route: 042
  4. CYCLOPHOSPHAMIDE [Suspect]
     Active Substance: CYCLOPHOSPHAMIDE
     Dosage: ON DAYS 1, 2 (VCP CHEMOTHERAPY)
     Route: 042
  5. VINDESINE [Suspect]
     Active Substance: VINDESINE
     Indication: T-cell type acute leukaemia
     Dosage: ON DAYS 1, 8 (VCP CHEMOTHERAPY)
     Route: 042
  6. CYTARABINE [Suspect]
     Active Substance: CYTARABINE
     Indication: Leukocytosis
     Dosage: CYTARABINE ACTAVIS
     Route: 042

REACTIONS (4)
  - Septic shock [Fatal]
  - Escherichia sepsis [Not Recovered/Not Resolved]
  - Infection [Not Recovered/Not Resolved]
  - Clostridium difficile infection [Not Recovered/Not Resolved]
